FAERS Safety Report 12300664 (Version 1)
Quarter: 2016Q2

REPORT INFORMATION
  Report Type: Spontaneous
  Country: US (occurrence: US)
  Receive Date: 20160425
  Receipt Date: 20160425
  Transmission Date: 20160815
  Serious: Yes (Death, Other)
  Sender: FDA-Public Use
  Company Number: US-ASTELLAS-2016US015879

PATIENT
  Age: 87 Year
  Sex: Male

DRUGS (1)
  1. XTANDI [Suspect]
     Active Substance: ENZALUTAMIDE
     Indication: NEOPLASM MALIGNANT
     Route: 048
     Dates: start: 20160225, end: 20160324

REACTIONS (3)
  - Pneumonia [Fatal]
  - Off label use [Unknown]
  - Respiratory failure [Fatal]

NARRATIVE: CASE EVENT DATE: 20160225
